FAERS Safety Report 11670949 (Version 1)
Quarter: 2015Q4

REPORT INFORMATION
  Report Type: Spontaneous
  Country: FR (occurrence: FR)
  Receive Date: 20151028
  Receipt Date: 20151028
  Transmission Date: 20160304
  Serious: Yes (Other)
  Sender: FDA-Public Use
  Company Number: FR-009507513-1510FRA010980

PATIENT
  Sex: Male

DRUGS (1)
  1. REBETOL [Suspect]
     Active Substance: RIBAVIRIN
     Indication: HEPATITIS C
     Route: 048

REACTIONS (7)
  - Fatigue [Recovered/Resolved]
  - Nervousness [Recovered/Resolved]
  - Platelet count decreased [Recovered/Resolved]
  - Lymphoma [Recovering/Resolving]
  - Acne [Recovered/Resolved]
  - Mood swings [Recovered/Resolved]
  - Headache [Recovered/Resolved]
